FAERS Safety Report 4716720-5 (Version None)
Quarter: 2005Q3

REPORT INFORMATION
  Report Type: 
  Country: None (occurrence: None)
  Receive Date: 20050714
  Receipt Date: 20050628
  Transmission Date: 20060218
  Serious: Yes (Death, Hospitalization)
  Sender: FDA-Public Use
  Company Number: 2005PL000053

PATIENT
  Age: 17 Year
  Sex: Female

DRUGS (7)
  1. MERCAPTOPURINE [Suspect]
     Indication: CROHN'S DISEASE
     Dosage: 75 MG; QD/4.5 YEARS
  2. INFLIXIMAB [Suspect]
     Indication: CROHN'S DISEASE
     Dosage: 5 MG/KG; X20; IV
     Route: 042
  3. PREDNISONE [Concomitant]
  4. HYDROCORTISONE [Concomitant]
  5. MESALAMINE [Concomitant]
  6. METRONIDAZOLE [Concomitant]
  7. CORTICOSTERIODS [Concomitant]

REACTIONS (8)
  - AUTOIMMUNE HEPATITIS [None]
  - CONDITION AGGRAVATED [None]
  - HEPATOSPLENOMEGALY [None]
  - PANCYTOPENIA [None]
  - SEPSIS [None]
  - T-CELL LYMPHOMA [None]
  - VEIN DISORDER [None]
  - WHITE BLOOD CELL COUNT DECREASED [None]
